FAERS Safety Report 4637310-9 (Version None)
Quarter: 2005Q2

REPORT INFORMATION
  Report Type: 
  Country: None (occurrence: None)
  Receive Date: 20050328
  Receipt Date: 20041123
  Transmission Date: 20051028
  Serious: No
  Sender: FDA-Public Use
  Company Number: USA041184602

PATIENT
  Age: 49 Year
  Sex: Male

DRUGS (3)
  1. STRATTERA [Suspect]
     Dosage: 25 MG DAY
  2. PROZAC WEEKLY [Suspect]
     Dosage: 90 MG
  3. XANAX (ALPRAZOLAM DUM) [Concomitant]

REACTIONS (5)
  - ANXIETY [None]
  - INSOMNIA [None]
  - PROSTATIC PAIN [None]
  - TESTICULAR PAIN [None]
  - URINARY RETENTION [None]
